FAERS Safety Report 8138594-5 (Version None)
Quarter: 2012Q1

REPORT INFORMATION
  Report Type: 
  Country: None (occurrence: None)
  Receive Date: 20120215
  Receipt Date: 20120210
  Transmission Date: 20120608
  Serious: Yes (Hospitalization)
  Sender: FDA-Public Use
  Company Number: US-TEVA-321095USA

PATIENT
  Sex: Male
  Weight: 72.64 kg

DRUGS (5)
  1. EZETIMIBE [Concomitant]
     Indication: BLOOD CHOLESTEROL
     Route: 048
     Dates: start: 20111104
  2. WARFARIN SODIUM [Concomitant]
     Indication: BLOOD THROMBIN ABNORMAL
     Dosage: 5 MILLIGRAM;
     Route: 048
     Dates: start: 20111104
  3. METOPROLOL SUCCINATE [Concomitant]
     Indication: PALPITATIONS
     Dosage: 50 MILLIGRAM;
     Route: 048
  4. TREANDA [Suspect]
     Indication: CHRONIC LYMPHOCYTIC LEUKAEMIA
     Route: 042
     Dates: start: 20111017
  5. METFORMIN HCL [Concomitant]
     Indication: DIABETES MELLITUS
     Dosage: 750 MILLIGRAM;
     Route: 048
     Dates: start: 20120101

REACTIONS (9)
  - OEDEMA PERIPHERAL [None]
  - VOMITING [None]
  - NAUSEA [None]
  - FATIGUE [None]
  - ENERGY INCREASED [None]
  - WEIGHT DECREASED [None]
  - CHILLS [None]
  - THROMBOSIS [None]
  - BLOOD GLUCOSE INCREASED [None]
